FAERS Safety Report 8406621-3 (Version None)
Quarter: 2012Q2

REPORT INFORMATION
  Report Type: 
  Country: None (occurrence: None)
  Receive Date: 20120529
  Receipt Date: 19990714
  Transmission Date: 20120825
  Serious: Yes (Hospitalization)
  Sender: FDA-Public Use
  Company Number: 02100-JPN-99-0104

PATIENT
  Age: 71 Year
  Sex: Female

DRUGS (2)
  1. PLETAL [Suspect]
     Dosage: 100 MG, SINGLE, ORAL
     Route: 048
     Dates: start: 19990612, end: 19990709
  2. INSULIN (INSULIN) INJECTION [Concomitant]

REACTIONS (2)
  - JAUNDICE CHOLESTATIC [None]
  - GALLBLADDER CANCER [None]
